FAERS Safety Report 6826797-9 (Version None)
Quarter: 2010Q3

REPORT INFORMATION
  Report Type: 
  Country: None (occurrence: None)
  Receive Date: 20100709
  Receipt Date: 20100628
  Transmission Date: 20110219
  Serious: Yes (Death, Other)
  Sender: FDA-Public Use
  Company Number: US-TEVA-239428USA

PATIENT
  Age: 64 Year
  Sex: Female

DRUGS (6)
  1. MYCOPHENOLATE MOFETIL [Suspect]
     Indication: PROPHYLAXIS
  2. TACROLIMUS [Suspect]
     Indication: PROPHYLAXIS
  3. VANCOMYCIN [Suspect]
  4. CIPROFLOXACIN [Concomitant]
  5. PIPERACILLIN W/TAZOBACTAM [Concomitant]
     Indication: PROPHYLAXIS
  6. FLUCONAZOLE [Concomitant]

REACTIONS (2)
  - BACTERIAL INFECTION [None]
  - MULTI-ORGAN FAILURE [None]
